FAERS Safety Report 7111695-6 (Version None)
Quarter: 2010Q4

REPORT INFORMATION
  Report Type: 
  Country: None (occurrence: None)
  Receive Date: 20101118
  Receipt Date: 20101112
  Transmission Date: 20110411
  Serious: Yes (Hospitalization)
  Sender: FDA-Public Use
  Company Number: ES-ABBOTT-10P-144-0685109-00

PATIENT
  Age: 66 Year
  Sex: Male

DRUGS (6)
  1. TEVETENS [Suspect]
     Indication: HYPERTENSION
     Dosage: 600 MG DAILY
     Route: 048
     Dates: start: 20100611, end: 20100906
  2. EMCORETIC [Suspect]
     Indication: HYPERTENSION
     Dosage: 10 MG DAILY
     Route: 048
     Dates: start: 20100611, end: 20100906
  3. IBUPROFEN [Concomitant]
     Indication: VIRAL INFECTION
     Dosage: 1800 MG DAILY
     Route: 048
     Dates: start: 20010101, end: 20100808
  4. CAPTOPRIL [Concomitant]
     Indication: HYPERTENSION
     Dosage: 25 MG DAILY
     Route: 048
     Dates: start: 19960101, end: 20100710
  5. TAMSULOSIN HCL [Concomitant]
     Indication: BENIGN PROSTATIC HYPERPLASIA
     Dosage: 0.4 MG DAILY
     Route: 048
     Dates: start: 20010101
  6. PERMIXON [Concomitant]
     Indication: BENIGN PROSTATIC HYPERPLASIA
     Dosage: 160 MG DAILY
     Route: 048
     Dates: start: 20010101

REACTIONS (1)
  - ANAEMIA HAEMOLYTIC AUTOIMMUNE [None]
